FAERS Safety Report 24652567 (Version 1)
Quarter: 2024Q4

REPORT INFORMATION
  Report Type: Spontaneous
  Country: SG (occurrence: SG)
  Receive Date: 20241122
  Receipt Date: 20241122
  Transmission Date: 20250114
  Serious: Yes (Hospitalization)
  Sender: MYLAN
  Company Number: SG-MYLANLABS-2024M1104109

PATIENT
  Age: 37 Year
  Sex: Female

DRUGS (1)
  1. CELECOXIB [Suspect]
     Active Substance: CELECOXIB
     Indication: Product used for unknown indication
     Dosage: UNK
     Route: 065

REACTIONS (1)
  - Fixed eruption [Not Recovered/Not Resolved]

NARRATIVE: CASE EVENT DATE: 20241024
